FAERS Safety Report 9417955 (Version 2)
Quarter: 2013Q3

REPORT INFORMATION
  Report Type: Spontaneous
  Country: US (occurrence: US)
  Receive Date: 20130724
  Receipt Date: 20130813
  Transmission Date: 20140515
  Serious: Yes (Death, Hospitalization)
  Sender: FDA-Public Use
  Company Number: US-BAXTER-2013BAX025793

PATIENT
  Sex: Male

DRUGS (2)
  1. DIANEAL LOW CALCIUM [Suspect]
     Indication: PERITONEAL DIALYSIS
     Route: 033
     Dates: end: 20130704
  2. EXTRANEAL [Suspect]
     Indication: PERITONEAL DIALYSIS
     Route: 033

REACTIONS (4)
  - Sepsis [Fatal]
  - Noninfectious peritonitis [Not Recovered/Not Resolved]
  - Hypotension [Unknown]
  - Wound [Unknown]
